FAERS Safety Report 19204179 (Version 2)
Quarter: 2021Q4

REPORT INFORMATION
  Report Type: Other
  Country: CA (occurrence: CA)
  Receive Date: 20210503
  Receipt Date: 20211015
  Transmission Date: 20220303
  Serious: Yes (Hospitalization, Other)
  Sender: FDA-Public Use
  Company Number: CA-CELLTRION INC.-2021CA005665

PATIENT

DRUGS (14)
  1. RITUXIMAB [Suspect]
     Active Substance: RITUXIMAB
     Indication: Granulomatosis with polyangiitis
     Dosage: 375 MG/M2, 1 EVERY 4 WEEKS
     Route: 042
  2. RITUXIMAB [Suspect]
     Active Substance: RITUXIMAB
     Dosage: UNK
     Route: 042
  3. RITUXIMAB [Suspect]
     Active Substance: RITUXIMAB
     Dosage: 1 GRAM 1 EVERY 6 MONTHS
     Route: 042
  4. AZATHIOPRINE [Suspect]
     Active Substance: AZATHIOPRINE
     Indication: Granulomatosis with polyangiitis
     Route: 065
  5. CYCLOPHOSPHAMIDE [Suspect]
     Active Substance: CYCLOPHOSPHAMIDE
     Indication: Granulomatosis with polyangiitis
     Route: 042
  6. ECULIZUMAB [Suspect]
     Active Substance: ECULIZUMAB
     Indication: Granulomatosis with polyangiitis
     Route: 065
  7. HUMAN IMMUNOGLOBULIN G [Suspect]
     Active Substance: HUMAN IMMUNOGLOBULIN G
     Indication: Granulomatosis with polyangiitis
     Route: 042
  8. LEFLUNOMIDE [Suspect]
     Active Substance: LEFLUNOMIDE
     Indication: Granulomatosis with polyangiitis
     Dosage: UNK
     Route: 065
  9. METHOTREXATE [Suspect]
     Active Substance: METHOTREXATE
     Indication: Granulomatosis with polyangiitis
     Dosage: 25  MG 1 EVERY 1 WEEK
     Route: 065
  10. MYCOPHENOLATE MOFETIL [Suspect]
     Active Substance: MYCOPHENOLATE MOFETIL
     Indication: Granulomatosis with polyangiitis
     Route: 065
  11. PREDNISONE [Suspect]
     Active Substance: PREDNISONE
     Indication: Granulomatosis with polyangiitis
     Route: 065
  12. PREDNISONE [Suspect]
     Active Substance: PREDNISONE
     Dosage: UNK
     Route: 065
  13. PREDNISONE [Suspect]
     Active Substance: PREDNISONE
     Dosage: 15 MG, 1 EVERY 24 HOURS
     Route: 065
  14. AVACOPAN [Concomitant]
     Active Substance: AVACOPAN
     Dosage: 30 MILLIGRAM, 2 EVERY 1 DAY
     Route: 048

REACTIONS (12)
  - Condition aggravated [Unknown]
  - Osteonecrosis [Unknown]
  - Osteoporosis [Unknown]
  - Cytopenia [Unknown]
  - Arthritis bacterial [Unknown]
  - Cytomegalovirus infection [Unknown]
  - Hypersensitivity [Unknown]
  - Osteomyelitis [Unknown]
  - Pneumocystis jirovecii pneumonia [Unknown]
  - Pneumonia bacterial [Unknown]
  - Drug ineffective [Unknown]
  - Off label use [Unknown]
